FAERS Safety Report 8078447-4 (Version None)
Quarter: 2012Q1

REPORT INFORMATION
  Report Type: 
  Country: None (occurrence: None)
  Receive Date: 20120127
  Receipt Date: 20110125
  Transmission Date: 20120608
  Serious: No
  Sender: FDA-Public Use
  Company Number: US-ABBOTT-10P-163-0639858-00

PATIENT
  Sex: Female
  Weight: 48.124 kg

DRUGS (1)
  1. HUMIRA [Suspect]
     Indication: CROHN'S DISEASE
     Route: 058
     Dates: start: 20090101, end: 20110101

REACTIONS (7)
  - EMOTIONAL DISORDER [None]
  - GROIN ABSCESS [None]
  - VAGINAL ABSCESS [None]
  - PHARYNGITIS [None]
  - APPETITE DISORDER [None]
  - PSORIASIS [None]
  - RASH PRURITIC [None]
